FAERS Safety Report 12086300 (Version 1)
Quarter: 2016Q1

REPORT INFORMATION
  Report Type: Spontaneous
  Country: US (occurrence: US)
  Receive Date: 20160217
  Receipt Date: 20160217
  Transmission Date: 20160526
  Serious: No
  Sender: FDA-Public Use
  Company Number: US-ALLERGAN-1511278US

PATIENT
  Age: 83 Year
  Sex: Female

DRUGS (2)
  1. RESTASIS [Suspect]
     Active Substance: CYCLOSPORINE
     Indication: DRY EYE
     Dosage: 1-2 GTT DAILY TO EACH EYE
     Route: 047
     Dates: end: 2014
  2. XANAX [Concomitant]
     Active Substance: ALPRAZOLAM
     Indication: FEELING OF RELAXATION
     Dosage: 0.5 MG, QD
     Route: 048

REACTIONS (4)
  - Asthenopia [Recovered/Resolved]
  - Eye pain [Recovered/Resolved]
  - Seizure [Recovered/Resolved]
  - Insomnia [Unknown]

NARRATIVE: CASE EVENT DATE: 201407
